FAERS Safety Report 16815461 (Version 2)
Quarter: 2019Q4

REPORT INFORMATION
  Report Type: Spontaneous
  Country: US (occurrence: US)
  Receive Date: 20190917
  Receipt Date: 20191002
  Transmission Date: 20200122
  Serious: No
  Sender: FDA-Public Use
  Company Number: US-ASTRAZENECA-2019SF23151

PATIENT
  Sex: Male
  Weight: 103 kg

DRUGS (1)
  1. BYDUREON BCISE [Suspect]
     Active Substance: EXENATIDE
     Indication: TYPE 2 DIABETES MELLITUS
     Route: 058

REACTIONS (4)
  - Device malfunction [Unknown]
  - Injection site extravasation [Unknown]
  - Injection site pain [Unknown]
  - Intentional device misuse [Unknown]
